FAERS Safety Report 7280701-0 (Version None)
Quarter: 2011Q1

REPORT INFORMATION
  Report Type: 
  Country: None (occurrence: None)
  Receive Date: 20110208
  Receipt Date: 20110128
  Transmission Date: 20110831
  Serious: Yes (Death, Hospitalization)
  Sender: FDA-Public Use
  Company Number: B0686893A

PATIENT
  Sex: Male
  Weight: 60.1 kg

DRUGS (6)
  1. HYCAMTIN [Suspect]
     Dosage: 1MG PER DAY
     Route: 042
     Dates: start: 20100726, end: 20100730
  2. UNKNOWN [Concomitant]
     Indication: ARRHYTHMIA
     Dosage: 300MG PER DAY
     Route: 048
     Dates: start: 20070810, end: 20101013
  3. FLIVAS [Concomitant]
     Dosage: 50MG PER DAY
     Route: 048
  4. LASTET [Concomitant]
     Dosage: 150MG PER DAY
     Route: 065
     Dates: start: 20070711, end: 20100406
  5. BRIPLATIN [Concomitant]
     Dosage: 120MG PER DAY
     Route: 065
     Dates: start: 20070711, end: 20100408
  6. AMRUBICIN HYDROCHLORIDE [Concomitant]
     Dosage: 60MG PER DAY
     Route: 042
     Dates: start: 20100607, end: 20100609

REACTIONS (6)
  - PLEURAL EFFUSION [None]
  - DYSPNOEA [None]
  - SMALL CELL LUNG CANCER STAGE UNSPECIFIED [None]
  - ANAEMIA [None]
  - NAUSEA [None]
  - INTERSTITIAL LUNG DISEASE [None]
